FAERS Safety Report 13331349 (Version 1)
Quarter: 2017Q1

REPORT INFORMATION
  Report Type: Spontaneous
  Country: US (occurrence: US)
  Receive Date: 20170313
  Receipt Date: 20170313
  Transmission Date: 20170428
  Serious: Yes (Disabling)
  Sender: FDA-Public Use
  Company Number: None

PATIENT
  Age: 62 Year
  Sex: Female
  Weight: 47.7 kg

DRUGS (5)
  1. SUMATRIPTIN [Concomitant]
  2. HYDROCORTISONE ACETATE 25MG [Suspect]
     Active Substance: HYDROCORTISONE ACETATE
     Indication: HAEMORRHOIDS
     Dosage: QUANTITY:1 SUPPOSITORY(IES);?
     Route: 054
     Dates: start: 20160901, end: 20160914
  3. MULTIVITAMIN [Concomitant]
     Active Substance: VITAMINS
  4. VITAMIN B COMPLEX [Concomitant]
     Active Substance: CYANOCOBALAMIN\DEXPANTHENOL\NIACINAMIDE\PYRIDOXINE HYDROCHLORIDE\RIBOFLAVIN 5^-PHOSPHATE SODIUM\THIAMINE HYDROCHLORIDE\VITAMIN B COMPLEX
  5. MAG/CAL COMBO [Concomitant]

REACTIONS (4)
  - Proctalgia [None]
  - Frustration tolerance decreased [None]
  - Anorectal swelling [None]
  - Anorectal discomfort [None]

NARRATIVE: CASE EVENT DATE: 20160912
